FAERS Safety Report 20724963 (Version 1)
Quarter: 2022Q2

REPORT INFORMATION
  Report Type: Spontaneous
  Country: US (occurrence: US)
  Receive Date: 20220419
  Receipt Date: 20220419
  Transmission Date: 20220720
  Serious: Yes (Other)
  Sender: FDA-Public Use
  Company Number: US-PFIZER INC-202100922662

PATIENT
  Age: 20 Year
  Sex: Male

DRUGS (2)
  1. CABERGOLINE [Suspect]
     Active Substance: CABERGOLINE
     Indication: Prolactin-producing pituitary tumour
     Dosage: 0.5 MG, WEEKLY
  2. BROMOCRIPTINE [Suspect]
     Active Substance: BROMOCRIPTINE
     Indication: Prolactin-producing pituitary tumour
     Dosage: 2.5 MG, DAILY

REACTIONS (2)
  - Priapism [Unknown]
  - Drug intolerance [Unknown]
